FAERS Safety Report 26148337 (Version 1)
Quarter: 2025Q4

REPORT INFORMATION
  Report Type: Spontaneous
  Country: GB (occurrence: GB)
  Receive Date: 20251212
  Receipt Date: 20251212
  Transmission Date: 20260117
  Serious: Yes (Other)
  Sender: AUROBINDO
  Company Number: GB-MLMSERVICE-20251126-PI722526-00246-2

PATIENT
  Age: 21 Year
  Sex: Male

DRUGS (12)
  1. OLANZAPINE [Suspect]
     Active Substance: OLANZAPINE
     Indication: Psychotic disorder
     Dosage: 20 MILLIGRAM
     Route: 065
  2. OLANZAPINE [Suspect]
     Active Substance: OLANZAPINE
     Indication: Schizophrenia
     Dosage: 17.5 MILLIGRAM, DAILY
     Route: 065
  3. OLANZAPINE [Suspect]
     Active Substance: OLANZAPINE
     Dosage: 15 MILLIGRAM, DAILY
     Route: 065
  4. OLANZAPINE [Suspect]
     Active Substance: OLANZAPINE
     Dosage: 10 MILLIGRAM, DAILY
     Route: 065
  5. OLANZAPINE [Suspect]
     Active Substance: OLANZAPINE
     Dosage: 5 MILLIGRAM, DAILY
     Route: 065
  6. QUETIAPINE [Suspect]
     Active Substance: QUETIAPINE
     Indication: Psychotic disorder
     Dosage: 20 MILLIGRAM
     Route: 065
  7. QUETIAPINE [Suspect]
     Active Substance: QUETIAPINE
     Indication: Schizophrenia
     Dosage: 25 MILLIGRAM, TWO TIMES A DAY
     Route: 065
  8. CLOZAPINE [Concomitant]
     Active Substance: CLOZAPINE
     Indication: Product used for unknown indication
     Dosage: 12.5 MILLIGRAM, ONCE A DAY
     Route: 065
  9. CLOZAPINE [Concomitant]
     Active Substance: CLOZAPINE
     Dosage: 50 MILLIGRAM, TWO TIMES A DAY
     Route: 065
  10. CLOZAPINE [Concomitant]
     Active Substance: CLOZAPINE
     Dosage: 100 MILLIGRAM, TWO TIMES A DAY
     Route: 065
  11. CLOZAPINE [Concomitant]
     Active Substance: CLOZAPINE
     Dosage: 150 MILLIGRAM, TWO TIMES A DAY
     Route: 065
  12. CLOZAPINE [Concomitant]
     Active Substance: CLOZAPINE
     Dosage: 300 MILLIGRAM, DAILY
     Route: 065

REACTIONS (1)
  - Generalised tonic-clonic seizure [Recovered/Resolved]
